FAERS Safety Report 11930254 (Version 1)
Quarter: 2016Q1

REPORT INFORMATION
  Report Type: Spontaneous
  Country: US (occurrence: None)
  Receive Date: 20160120
  Receipt Date: 20160120
  Transmission Date: 20160526
  Serious: Yes (Hospitalization)
  Sender: FDA-Public Use
  Company Number: None

PATIENT
  Age: 12 Year
  Sex: Female
  Weight: 37.5 kg

DRUGS (5)
  1. VINCRISTINE SULFATE. [Suspect]
     Active Substance: VINCRISTINE SULFATE
     Dates: end: 20160108
  2. CYTARABINE. [Suspect]
     Active Substance: CYTARABINE
     Dates: end: 20151231
  3. PREDNISONE. [Suspect]
     Active Substance: PREDNISONE
     Dates: end: 20160112
  4. ONCASPAR [Suspect]
     Active Substance: PEGASPARGASE
     Dates: end: 20160105
  5. DAUNORUBICIN [Suspect]
     Active Substance: DAUNORUBICIN
     Dates: end: 20160108

REACTIONS (3)
  - Neutropenia [None]
  - Hypotension [None]
  - Pyrexia [None]

NARRATIVE: CASE EVENT DATE: 20160112
